FAERS Safety Report 6366631-7 (Version None)
Quarter: 2009Q3

REPORT INFORMATION
  Report Type: 
  Country: None (occurrence: None)
  Receive Date: 20090921
  Receipt Date: 20090911
  Transmission Date: 20100115
  Serious: Yes (Other)
  Sender: FDA-Public Use
  Company Number: PHHY2009CA29607

PATIENT
  Sex: Female

DRUGS (2)
  1. SANDOSTATIN LAR [Suspect]
     Indication: METASTATIC NEOPLASM
     Dosage: 10 MG, QMO
     Route: 030
     Dates: start: 20090710
  2. SANDOSTATIN LAR [Suspect]
     Indication: GASTROINTESTINAL OBSTRUCTION

REACTIONS (14)
  - ABDOMINAL DISCOMFORT [None]
  - ABDOMINAL DISTENSION [None]
  - ABDOMINAL PAIN UPPER [None]
  - ALOPECIA [None]
  - CONSTIPATION [None]
  - DIARRHOEA [None]
  - DYSPNOEA [None]
  - FATIGUE [None]
  - FEELING ABNORMAL [None]
  - HEADACHE [None]
  - MEDIASTINAL DISORDER [None]
  - NAUSEA [None]
  - PAIN [None]
  - PRURITUS [None]
